FAERS Safety Report 16643522 (Version 2)
Quarter: 2019Q3

REPORT INFORMATION
  Report Type: Spontaneous
  Country: US (occurrence: US)
  Receive Date: 20190729
  Receipt Date: 20190729
  Transmission Date: 20191004
  Serious: No
  Sender: FDA-Public Use
  Company Number: US-PRINSTON PHARMACEUTICAL INC.-2018PRN00725

PATIENT
  Sex: Male
  Weight: 68.03 kg

DRUGS (10)
  1. LISINOPRIL. [Suspect]
     Active Substance: LISINOPRIL
     Dosage: 10 MG, 2X/DAY
     Route: 048
     Dates: start: 201806, end: 201806
  2. LISINOPRIL. [Suspect]
     Active Substance: LISINOPRIL
     Indication: HYPERTENSION
     Dosage: 10 MG, 2X/DAY
     Route: 048
     Dates: start: 201712
  3. LISINOPRIL. [Suspect]
     Active Substance: LISINOPRIL
     Dosage: 20 MG, 2X/DAY
     Route: 048
  4. METOPROLOL. [Concomitant]
     Active Substance: METOPROLOL
  5. LISINOPRIL. [Suspect]
     Active Substance: LISINOPRIL
     Dosage: 10 MG, 2X/DAY
     Route: 048
     Dates: start: 201806, end: 2018
  6. ROSUVASTATIN. [Concomitant]
     Active Substance: ROSUVASTATIN
  7. BABY ASPIRIN [Concomitant]
     Active Substance: ASPIRIN
  8. LISINOPRIL. [Suspect]
     Active Substance: LISINOPRIL
     Indication: HYPERTENSION
     Dosage: 10 MG, 2X/DAY
     Route: 048
     Dates: start: 2018
  9. ALLOPURINOL. [Concomitant]
     Active Substance: ALLOPURINOL
  10. LISINOPRIL. [Suspect]
     Active Substance: LISINOPRIL
     Dosage: 10 MG, 2X/DAY
     Route: 048
     Dates: end: 201806

REACTIONS (4)
  - Hypotension [Recovered/Resolved]
  - Blood pressure increased [Recovered/Resolved]
  - Head discomfort [Not Recovered/Not Resolved]
  - Headache [Not Recovered/Not Resolved]

NARRATIVE: CASE EVENT DATE: 2018
